FAERS Safety Report 7737335-0 (Version None)
Quarter: 2011Q3

REPORT INFORMATION
  Report Type: 
  Country: None (occurrence: None)
  Receive Date: 20110908
  Receipt Date: 20110829
  Transmission Date: 20111222
  Serious: Yes (Other)
  Sender: FDA-Public Use
  Company Number: US-JNJFOC-20110900059

PATIENT
  Sex: Male
  Weight: 147.42 kg

DRUGS (18)
  1. ADDERALL 5 [Concomitant]
     Indication: ATTENTION DEFICIT/HYPERACTIVITY DISORDER
     Dates: start: 20040101
  2. PREVACID [Concomitant]
     Indication: GASTROOESOPHAGEAL REFLUX DISEASE
     Dates: start: 20080101
  3. WELLBUTRIN [Concomitant]
     Indication: DEPRESSION
  4. REMICADE [Suspect]
     Indication: PSORIATIC ARTHROPATHY
     Dosage: 10 VIALS
     Route: 042
     Dates: start: 20090101
  5. ZOLOFT [Concomitant]
     Indication: ANXIETY
     Dates: start: 20070101, end: 20110101
  6. ZOLOFT [Concomitant]
     Dates: start: 20110101
  7. PATADAY [Concomitant]
     Indication: MULTIPLE ALLERGIES
  8. DIOVAN [Concomitant]
     Indication: HYPERTENSION
     Route: 048
     Dates: start: 20020101
  9. REMICADE [Suspect]
     Dosage: 10 VIALS
     Route: 042
  10. COMBIVENT [Concomitant]
     Indication: ASTHMA
  11. REMICADE [Suspect]
     Dosage: 10 VIALS
     Route: 042
  12. ALLEGRA [Concomitant]
     Indication: MULTIPLE ALLERGIES
     Dates: start: 20060101
  13. REMICADE [Suspect]
     Dosage: 10 VIALS
     Route: 042
  14. ATARAX [Concomitant]
     Indication: PRURITUS
     Dosage: 25 TO 100 MG AT NIGHT
     Route: 048
     Dates: start: 20010101
  15. IBUPROFEN [Concomitant]
     Indication: ARTHRITIS
  16. REMICADE [Suspect]
     Dosage: 10 VIALS
     Route: 042
  17. REMICADE [Suspect]
     Dosage: 7 VIALS
     Route: 042
     Dates: start: 20090101, end: 20090101
  18. NAPROXEN [Concomitant]
     Indication: ARTHRITIS
     Dates: start: 20090101

REACTIONS (5)
  - SLEEP APNOEA SYNDROME [None]
  - BLOOD TEST ABNORMAL [None]
  - DRUG EFFECT DECREASED [None]
  - ANXIETY [None]
  - DRUG TOLERANCE [None]
